FAERS Safety Report 17496354 (Version 1)
Quarter: 2020Q1

REPORT INFORMATION
  Report Type: Report from Study
  Country: None (occurrence: US)
  Receive Date: 20200303
  Receipt Date: 20200303
  Transmission Date: 20200409
  Serious: Yes (Other)
  Sender: FDA-Public Use
  Company Number: US-ABBVIE-19K-163-2974147-00

PATIENT
  Age: 50 Year
  Sex: Female

DRUGS (2)
  1. HUMIRA [Suspect]
     Active Substance: ADALIMUMAB
     Indication: CROHN^S DISEASE
     Dosage: CITRATE FREE
     Route: 058
  2. HUMIRA [Suspect]
     Active Substance: ADALIMUMAB
     Route: 058

REACTIONS (11)
  - Depression [Not Recovered/Not Resolved]
  - Abscess [Not Recovered/Not Resolved]
  - Gastritis [Unknown]
  - Oesophagitis [Unknown]
  - Hiatus hernia [Not Recovered/Not Resolved]
  - Intentional product misuse [Unknown]
  - Anal abscess [Unknown]
  - Anal fistula [Unknown]
  - Postoperative abscess [Unknown]
  - Rectal abscess [Unknown]
  - Injection site pain [Recovered/Resolved]

NARRATIVE: CASE EVENT DATE: 201811
